FAERS Safety Report 8611996-6 (Version None)
Quarter: 2012Q3

REPORT INFORMATION
  Report Type: 
  Country: None (occurrence: None)
  Receive Date: 20120822
  Receipt Date: 20120813
  Transmission Date: 20120928
  Serious: No
  Sender: FDA-Public Use
  Company Number: US-GLAXOSMITHKLINE-A0972496A

PATIENT
  Age: 13 Year
  Sex: Female
  Weight: 56 kg

DRUGS (3)
  1. FLOLAN [Suspect]
     Indication: PULMONARY ARTERIAL HYPERTENSION
     Route: 042
     Dates: start: 20101207
  2. SILDENAFIL [Concomitant]
     Indication: PULMONARY HYPERTENSION
     Dosage: 60MG THREE TIMES PER DAY
     Route: 048
  3. BOSENTAN [Concomitant]
     Indication: PULMONARY HYPERTENSION
     Dosage: 125MG TWICE PER DAY
     Route: 048

REACTIONS (5)
  - TREATMENT NONCOMPLIANCE [None]
  - MEDICAL DEVICE COMPLICATION [None]
  - DIZZINESS [None]
  - DYSPNOEA [None]
  - PRESYNCOPE [None]
